FAERS Safety Report 14954076 (Version 1)
Quarter: 2018Q2

REPORT INFORMATION
  Report Type: Spontaneous
  Country: US (occurrence: US)
  Receive Date: 20180530
  Receipt Date: 20180530
  Transmission Date: 20180711
  Serious: No
  Sender: FDA-Public Use
  Company Number: US-ENDO PHARMACEUTICALS INC-2017-005487

PATIENT
  Sex: Female
  Weight: 46.71 kg

DRUGS (1)
  1. SUPPRELIN LA [Suspect]
     Active Substance: HISTRELIN ACETATE
     Indication: PRECOCIOUS PUBERTY
     Dosage: UNK UNK, FIRST IMPLANT PLACED IN RIGHT ARM
     Dates: start: 201304

REACTIONS (3)
  - Procedural complication [Unknown]
  - Incorrect drug administration duration [Unknown]
  - Device breakage [Unknown]
